FAERS Safety Report 21527782 (Version 17)
Quarter: 2025Q4

REPORT INFORMATION
  Report Type: Spontaneous
  Country: GB (occurrence: GB)
  Receive Date: 20221031
  Receipt Date: 20251222
  Transmission Date: 20260117
  Serious: Yes (Death, Hospitalization, Other)
  Sender: SANOFI AVENTIS
  Company Number: GB-MYLANLABS-2019M1117808

PATIENT
  Age: 59 Year
  Sex: Male
  Weight: 62 kg

DRUGS (418)
  1. CHLORPROMAZINE [Suspect]
     Active Substance: CHLORPROMAZINE
     Indication: Schizophrenia
     Dosage: 75 MG
  2. CHLORPROMAZINE [Suspect]
     Active Substance: CHLORPROMAZINE
     Dosage: 75 MG
  3. CHLORPROMAZINE [Suspect]
     Active Substance: CHLORPROMAZINE
     Dosage: 75 MG
  4. CHLORPROMAZINE [Suspect]
     Active Substance: CHLORPROMAZINE
     Dosage: 75 MG
  5. CHLORPROMAZINE [Suspect]
     Active Substance: CHLORPROMAZINE
     Dosage: 75 MG
  6. CHLORPROMAZINE [Suspect]
     Active Substance: CHLORPROMAZINE
     Dosage: 75 MG
  7. CHLORPROMAZINE [Suspect]
     Active Substance: CHLORPROMAZINE
     Dosage: 75 MG
  8. CHLORPROMAZINE [Suspect]
     Active Substance: CHLORPROMAZINE
     Dosage: 75 MG
  9. CHLORPROMAZINE [Suspect]
     Active Substance: CHLORPROMAZINE
     Dosage: 75 MG
  10. CHLORPROMAZINE [Suspect]
     Active Substance: CHLORPROMAZINE
     Dosage: 75 MG
  11. CHLORPROMAZINE [Suspect]
     Active Substance: CHLORPROMAZINE
     Dosage: 75 MG
  12. CHLORPROMAZINE [Suspect]
     Active Substance: CHLORPROMAZINE
     Dosage: 75 MG
  13. CHLORPROMAZINE [Suspect]
     Active Substance: CHLORPROMAZINE
     Dosage: 75 MG
  14. ARIPIPRAZOLE [Suspect]
     Active Substance: ARIPIPRAZOLE
     Indication: Schizophrenia
     Dosage: 5 MG
     Route: 048
  15. CLOZAPINE [Suspect]
     Active Substance: CLOZAPINE
     Indication: Schizophrenia
     Dosage: 300 MG, QD (PM)
  16. CLOZAPINE [Suspect]
     Active Substance: CLOZAPINE
     Dosage: 6000 MG
     Route: 048
     Dates: start: 20100823
  17. CLOZAPINE [Suspect]
     Active Substance: CLOZAPINE
     Dosage: UNK
     Route: 048
     Dates: start: 20100823
  18. CLOZAPINE [Suspect]
     Active Substance: CLOZAPINE
     Dosage: 245 MG, QD(AM)
     Route: 065
     Dates: start: 2011
  19. CLOZAPINE [Suspect]
     Active Substance: CLOZAPINE
     Dosage: 100 MG, QD (AM)
     Route: 065
     Dates: start: 2011
  20. CLOZAPINE [Suspect]
     Active Substance: CLOZAPINE
     Dosage: 1 DF, QD
     Route: 065
     Dates: start: 2011
  21. CLOZAPINE [Suspect]
     Active Substance: CLOZAPINE
     Dosage: 200 MG, BID
     Route: 048
     Dates: start: 20191209, end: 20191223
  22. CLOZAPINE [Suspect]
     Active Substance: CLOZAPINE
     Dosage: UNK UNK, QD
     Route: 048
     Dates: start: 20191209, end: 20191223
  23. CLOZAPINE [Suspect]
     Active Substance: CLOZAPINE
     Dosage: 400 MG, QD
     Route: 048
     Dates: start: 20191209, end: 20191223
  24. CLOZAPINE [Suspect]
     Active Substance: CLOZAPINE
     Dosage: 50 MG, QD (MIDDAY)
     Route: 048
     Dates: start: 20200521
  25. CLOZAPINE [Suspect]
     Active Substance: CLOZAPINE
     Dosage: 400 MG, BID
     Route: 065
  26. CLOZAPINE [Suspect]
     Active Substance: CLOZAPINE
     Dosage: 275 MG, QD
     Route: 048
     Dates: start: 20200521, end: 2020
  27. CLOZAPINE [Suspect]
     Active Substance: CLOZAPINE
     Dosage: UNK
     Route: 048
     Dates: start: 20200521, end: 2021
  28. CLOZAPINE [Suspect]
     Active Substance: CLOZAPINE
     Dosage: 6000 MG
     Route: 048
     Dates: start: 20200521, end: 2020
  29. CLOZAPINE [Suspect]
     Active Substance: CLOZAPINE
     Dosage: 6000 MG
     Route: 048
     Dates: start: 20201207
  30. CLOZAPINE [Suspect]
     Active Substance: CLOZAPINE
     Dosage: 6000 MG
     Route: 048
     Dates: start: 20201223, end: 20201223
  31. CLOZAPINE [Suspect]
     Active Substance: CLOZAPINE
     Dosage: 400 MG QD
     Route: 065
     Dates: start: 20201207
  32. CLOZAPINE [Suspect]
     Active Substance: CLOZAPINE
     Dosage: 245 MG
     Route: 048
     Dates: start: 20191209, end: 20191223
  33. CLOZAPINE [Suspect]
     Active Substance: CLOZAPINE
     Dosage: 6000 MG
     Route: 048
     Dates: start: 20191223, end: 20191223
  34. CLOZAPINE [Suspect]
     Active Substance: CLOZAPINE
     Dosage: 6000 MG
     Route: 048
     Dates: start: 20201209, end: 20201223
  35. CLOZAPINE [Suspect]
     Active Substance: CLOZAPINE
     Dosage: 6000 MG
     Route: 048
     Dates: start: 20200521
  36. CLOZAPINE [Suspect]
     Active Substance: CLOZAPINE
     Dosage: 800 MG, QD
     Route: 065
     Dates: start: 20201207
  37. CLOZAPINE [Suspect]
     Active Substance: CLOZAPINE
     Dosage: 275 MG, QD
     Route: 048
     Dates: start: 20191209, end: 20191223
  38. CLOZAPINE [Suspect]
     Active Substance: CLOZAPINE
     Dosage: 50 MG, QD
     Route: 065
     Dates: start: 20211209
  39. CLOZAPINE [Suspect]
     Active Substance: CLOZAPINE
     Dosage: 400 MG, QD
     Route: 048
     Dates: start: 20211223
  40. CLOZAPINE [Suspect]
     Active Substance: CLOZAPINE
     Dosage: 400 MG, QD
     Route: 048
     Dates: start: 20201207
  41. CLOZAPINE [Suspect]
     Active Substance: CLOZAPINE
     Dosage: 275 MG, QD
     Route: 065
  42. CLOZAPINE [Suspect]
     Active Substance: CLOZAPINE
     Dosage: UNK
     Route: 048
     Dates: start: 20191209, end: 20191223
  43. CLOZAPINE [Suspect]
     Active Substance: CLOZAPINE
     Dosage: UNK
     Dates: start: 2011
  44. CLOZAPINE [Suspect]
     Active Substance: CLOZAPINE
     Dosage: 245 MG
     Route: 048
     Dates: start: 20191207
  45. CLOZAPINE [Suspect]
     Active Substance: CLOZAPINE
     Dosage: 245 MG, QD
     Route: 048
     Dates: start: 20191223, end: 20191223
  46. CLOZAPINE [Suspect]
     Active Substance: CLOZAPINE
     Dosage: 245 MG
     Route: 048
     Dates: start: 20200521
  47. CLOZAPINE [Suspect]
     Active Substance: CLOZAPINE
     Dosage: 275 MG, BID
     Route: 048
     Dates: start: 20201207
  48. CLOZAPINE [Suspect]
     Active Substance: CLOZAPINE
     Dosage: 6000 MG, QD
     Route: 048
     Dates: start: 20201223, end: 20201223
  49. CLOZAPINE [Suspect]
     Active Substance: CLOZAPINE
     Dosage: 50 MG, QD (MIDDAY)
  50. CLOZAPINE [Suspect]
     Active Substance: CLOZAPINE
     Dosage: UNK
     Dates: start: 20201207
  51. CLOZAPINE [Suspect]
     Active Substance: CLOZAPINE
     Dosage: 1 DOSAGE FORM, (AT AM)
  52. CLOZAPINE [Suspect]
     Active Substance: CLOZAPINE
     Dosage: UNK
     Dates: end: 20191223
  53. CLOZAPINE [Suspect]
     Active Substance: CLOZAPINE
     Dosage: 400.000MG QD
  54. CLOZAPINE [Suspect]
     Active Substance: CLOZAPINE
     Dosage: 400.000MG QD
     Dates: end: 20191223
  55. CLOZAPINE [Suspect]
     Active Substance: CLOZAPINE
     Dosage: 50.000MG QD
     Dates: start: 20191223
  56. CLOZAPINE [Suspect]
     Active Substance: CLOZAPINE
     Dosage: 400.000MG QD
     Dates: start: 20200521
  57. CLOZAPINE [Suspect]
     Active Substance: CLOZAPINE
     Dosage: 200.000MG QD
  58. CLOZAPINE [Suspect]
     Active Substance: CLOZAPINE
     Dosage: 400.000MG
     Dates: start: 20191223
  59. CLOZAPINE [Suspect]
     Active Substance: CLOZAPINE
     Dosage: 275.000MG QD
     Dates: start: 20200521, end: 20200521
  60. CLOZAPINE [Suspect]
     Active Substance: CLOZAPINE
     Dosage: 6000.000MG
     Dates: start: 20201209
  61. CLOZAPINE [Suspect]
     Active Substance: CLOZAPINE
     Dosage: UNK
     Dates: start: 20191207, end: 20191223
  62. CLOZAPINE [Suspect]
     Active Substance: CLOZAPINE
     Dosage: UNK
     Dates: end: 20191223
  63. CLOZAPINE [Suspect]
     Active Substance: CLOZAPINE
     Dosage: 400.000MG QD
  64. CLOZAPINE [Suspect]
     Active Substance: CLOZAPINE
     Dosage: 400.000MG QD
     Dates: end: 20191223
  65. CLOZAPINE [Suspect]
     Active Substance: CLOZAPINE
     Dosage: 275.000MG QD
     Dates: start: 20200521, end: 20200521
  66. CLOZAPINE [Suspect]
     Active Substance: CLOZAPINE
     Dosage: 6000.000MG
     Dates: start: 20201209
  67. CLOZAPINE [Suspect]
     Active Substance: CLOZAPINE
     Dosage: 400.000MG QD
     Dates: start: 20200521
  68. CLOZAPINE [Suspect]
     Active Substance: CLOZAPINE
     Dosage: 200.000MG QD
  69. CLOZAPINE [Suspect]
     Active Substance: CLOZAPINE
     Dosage: 1 DOSAGE FORM, (AT AM)
  70. CLOZAPINE [Suspect]
     Active Substance: CLOZAPINE
     Dates: start: 20191207, end: 20191223
  71. CLOZAPINE [Suspect]
     Active Substance: CLOZAPINE
     Dosage: 400.000MG
     Dates: start: 20191223
  72. CLOZAPINE [Suspect]
     Active Substance: CLOZAPINE
     Dosage: 50.000MG QD
     Dates: start: 20191223
  73. CLOZAPINE [Suspect]
     Active Substance: CLOZAPINE
     Dosage: 400.000MG QD
  74. CLOZAPINE [Suspect]
     Active Substance: CLOZAPINE
     Dosage: 400.000MG QD
     Dates: end: 20191223
  75. CLOZAPINE [Suspect]
     Active Substance: CLOZAPINE
     Dosage: 275.000MG QD
     Dates: start: 20200521, end: 20200521
  76. CLOZAPINE [Suspect]
     Active Substance: CLOZAPINE
     Dosage: 200.000MG QD
  77. CLOZAPINE [Suspect]
     Active Substance: CLOZAPINE
     Dosage: 1 DOSAGE FORM, (AT AM)
  78. CLOZAPINE [Suspect]
     Active Substance: CLOZAPINE
     Dosage: UNK
     Dates: end: 20191223
  79. CLOZAPINE [Suspect]
     Active Substance: CLOZAPINE
     Dates: start: 20191207, end: 20191223
  80. CLOZAPINE [Suspect]
     Active Substance: CLOZAPINE
     Dosage: 400.000MG
     Dates: start: 20191223
  81. CLOZAPINE [Suspect]
     Active Substance: CLOZAPINE
     Dosage: 50.000MG QD
     Dates: start: 20191223
  82. CLOZAPINE [Suspect]
     Active Substance: CLOZAPINE
     Dosage: 400.000MG QD
     Dates: start: 20200521
  83. CLOZAPINE [Suspect]
     Active Substance: CLOZAPINE
     Dosage: 6000.000MG
     Dates: start: 20201209
  84. CLOZAPINE [Suspect]
     Active Substance: CLOZAPINE
     Dosage: UNK
     Route: 048
     Dates: start: 20200521, end: 2021
  85. CLOZAPINE [Suspect]
     Active Substance: CLOZAPINE
     Dosage: 600 MG, QD (AM)
     Route: 048
     Dates: start: 2011
  86. CLOZAPINE [Suspect]
     Active Substance: CLOZAPINE
     Dosage: 300 MG, QD (PM)
     Route: 048
  87. CLOZAPINE [Suspect]
     Active Substance: CLOZAPINE
     Dosage: 200 MG, QD
     Route: 048
     Dates: end: 20191223
  88. CLOZAPINE [Suspect]
     Active Substance: CLOZAPINE
     Dosage: 100 MG, QD
     Route: 048
     Dates: end: 20191223
  89. CLOZAPINE [Suspect]
     Active Substance: CLOZAPINE
     Dosage: 245 MG, QD
     Route: 048
     Dates: start: 20191209, end: 20191223
  90. CLOZAPINE [Suspect]
     Active Substance: CLOZAPINE
     Dosage: UNK
     Route: 048
     Dates: end: 20220719
  91. CLOZAPINE [Suspect]
     Active Substance: CLOZAPINE
     Dosage: 400 MG, QD 200 MG, BID
     Route: 048
     Dates: start: 20191209, end: 20191223
  92. CLOZAPINE [Suspect]
     Active Substance: CLOZAPINE
     Dosage: 245 MG
     Route: 048
     Dates: start: 20100823, end: 20200823
  93. CLOZAPINE [Suspect]
     Active Substance: CLOZAPINE
     Dosage: 800 MG, QD
     Route: 048
     Dates: start: 20201207
  94. CLOZAPINE [Suspect]
     Active Substance: CLOZAPINE
     Dosage: 200 MG, BID
     Route: 048
     Dates: start: 20191209, end: 20191223
  95. CLOZAPINE [Suspect]
     Active Substance: CLOZAPINE
     Dosage: 200 MG, BID
     Route: 048
     Dates: start: 20191209, end: 20191223
  96. CLOZAPINE [Suspect]
     Active Substance: CLOZAPINE
     Dosage: 6000 MG, QD
     Route: 048
     Dates: start: 20201223, end: 20201223
  97. CLOZAPINE [Suspect]
     Active Substance: CLOZAPINE
     Dosage: 1 DOSAGE FORM, QD
     Route: 048
     Dates: end: 20220719
  98. CLOZAPINE [Suspect]
     Active Substance: CLOZAPINE
     Dosage: 6000 MG
     Route: 048
     Dates: start: 20200521, end: 2021
  99. CLOZAPINE [Suspect]
     Active Substance: CLOZAPINE
     Dosage: 400.000MG QD
     Dates: end: 20191223
  100. CLOZAPINE [Suspect]
     Active Substance: CLOZAPINE
     Dosage: 1 DOSAGE FORM, (AT AM)
  101. CLOZAPINE [Suspect]
     Active Substance: CLOZAPINE
     Dosage: 6000 MG
     Route: 048
     Dates: start: 20191209, end: 20191223
  102. CLOZAPINE [Suspect]
     Active Substance: CLOZAPINE
     Dosage: 400 MG, QD
     Route: 048
     Dates: start: 20191223, end: 20191223
  103. CLOZAPINE [Suspect]
     Active Substance: CLOZAPINE
     Dosage: 275.000MG QD
     Dates: start: 20200521, end: 20200521
  104. CLOZAPINE [Suspect]
     Active Substance: CLOZAPINE
     Dosage: UNK
     Route: 048
     Dates: start: 20100823, end: 20100823
  105. CLOZAPINE [Suspect]
     Active Substance: CLOZAPINE
     Dosage: UNK
     Dates: end: 20191223
  106. CLOZAPINE [Suspect]
     Active Substance: CLOZAPINE
     Dosage: 6000 MG
     Route: 048
     Dates: start: 20200521, end: 2021
  107. CLOZAPINE [Suspect]
     Active Substance: CLOZAPINE
     Dosage: 6000.000MG
     Dates: start: 20201209
  108. CLOZAPINE [Suspect]
     Active Substance: CLOZAPINE
     Dosage: 400 MG, QD (200 MG, BID)
     Route: 048
  109. CLOZAPINE [Suspect]
     Active Substance: CLOZAPINE
     Dosage: 400.000MG QD
  110. CLOZAPINE [Suspect]
     Active Substance: CLOZAPINE
     Dosage: 245 MG
     Route: 048
     Dates: start: 20191207, end: 20191223
  111. CLOZAPINE [Suspect]
     Active Substance: CLOZAPINE
     Dosage: 275 MG, QD (PM)
  112. CLOZAPINE [Suspect]
     Active Substance: CLOZAPINE
     Dosage: 400.000MG QD
     Dates: start: 20200521
  113. CLOZAPINE [Suspect]
     Active Substance: CLOZAPINE
     Dosage: UNK
     Route: 048
     Dates: start: 20200521, end: 2021
  114. CLOZAPINE [Suspect]
     Active Substance: CLOZAPINE
     Dosage: 400 MG, QD
     Route: 048
     Dates: start: 20201207
  115. CLOZAPINE [Suspect]
     Active Substance: CLOZAPINE
     Dosage: 50.000MG QD
     Dates: start: 20191223
  116. CLOZAPINE [Suspect]
     Active Substance: CLOZAPINE
     Dosage: 245 MG
     Route: 048
     Dates: start: 20200521, end: 2021
  117. CLOZAPINE [Suspect]
     Active Substance: CLOZAPINE
     Dosage: UNK
     Dates: start: 20191207, end: 20191223
  118. CLOZAPINE [Suspect]
     Active Substance: CLOZAPINE
     Dosage: 50.000MG QD
     Dates: start: 20191223
  119. CLOZAPINE [Suspect]
     Active Substance: CLOZAPINE
     Dosage: 400 MG, QD
     Route: 048
     Dates: start: 20191223, end: 20191223
  120. CLOZAPINE [Suspect]
     Active Substance: CLOZAPINE
     Dosage: UNK
     Route: 048
     Dates: start: 20100823, end: 20100823
  121. CLOZAPINE [Suspect]
     Active Substance: CLOZAPINE
     Dosage: UNK
     Route: 048
     Dates: start: 20100823
  122. CLOZAPINE [Suspect]
     Active Substance: CLOZAPINE
     Dosage: 200 MG, BID
     Route: 048
     Dates: start: 20191209, end: 20191223
  123. CLOZAPINE [Suspect]
     Active Substance: CLOZAPINE
     Dosage: 50 MG, QD
     Route: 048
     Dates: start: 20191209, end: 20191223
  124. CLOZAPINE [Suspect]
     Active Substance: CLOZAPINE
     Dosage: 6000 MG
     Route: 048
     Dates: start: 20200521
  125. CLOZAPINE [Suspect]
     Active Substance: CLOZAPINE
     Dosage: 300 MG, QD (PM)
     Route: 048
     Dates: start: 20100823
  126. CLOZAPINE [Suspect]
     Active Substance: CLOZAPINE
     Dosage: 6000 MG
     Route: 048
     Dates: start: 20201223, end: 20201223
  127. CLOZAPINE [Suspect]
     Active Substance: CLOZAPINE
     Dosage: 245 MG, QD
     Route: 048
     Dates: start: 20200521
  128. CLOZAPINE [Suspect]
     Active Substance: CLOZAPINE
     Dosage: UNK
     Route: 048
     Dates: start: 20100823, end: 20100823
  129. CLOZAPINE [Suspect]
     Active Substance: CLOZAPINE
     Dosage: 6000 MG
     Route: 048
     Dates: start: 20191209, end: 20191223
  130. CLOZAPINE [Suspect]
     Active Substance: CLOZAPINE
     Dosage: 6000 MG
     Route: 048
     Dates: start: 20201209, end: 20201223
  131. CLOZAPINE [Suspect]
     Active Substance: CLOZAPINE
     Dosage: 800 MG, QD
     Route: 048
     Dates: start: 20201207
  132. CLOZAPINE [Suspect]
     Active Substance: CLOZAPINE
     Dosage: 400 MG, QD
     Route: 048
     Dates: start: 20100823, end: 20100823
  133. CLOZAPINE [Suspect]
     Active Substance: CLOZAPINE
     Dosage: UNK
     Dates: end: 20191223
  134. CLOZAPINE [Suspect]
     Active Substance: CLOZAPINE
     Dosage: 50 MG, QD
     Route: 048
     Dates: start: 20191209, end: 20191223
  135. CLOZAPINE [Suspect]
     Active Substance: CLOZAPINE
     Dosage: 400 MG, QD
     Route: 048
     Dates: start: 20211223
  136. CLOZAPINE [Suspect]
     Active Substance: CLOZAPINE
     Dosage: 400.000MG QD
  137. CLOZAPINE [Suspect]
     Active Substance: CLOZAPINE
     Dosage: 400.000MG QD
     Route: 048
     Dates: start: 2011
  138. CLOZAPINE [Suspect]
     Active Substance: CLOZAPINE
     Dosage: 100.000MG QD
     Route: 048
     Dates: start: 2011
  139. CLOZAPINE [Suspect]
     Active Substance: CLOZAPINE
     Dates: start: 20191207, end: 20191223
  140. CLOZAPINE [Suspect]
     Active Substance: CLOZAPINE
     Dosage: 6000.000MG
     Route: 048
     Dates: start: 20200207
  141. CLOZAPINE [Suspect]
     Active Substance: CLOZAPINE
     Dosage: 50 MG, QD (MIDDAY)
  142. CLOZAPINE [Suspect]
     Active Substance: CLOZAPINE
     Dosage: 200.000MG QD
     Route: 048
  143. CLOZAPINE [Suspect]
     Active Substance: CLOZAPINE
     Dosage: UNK
     Dates: start: 20201207
  144. CLOZAPINE [Suspect]
     Active Substance: CLOZAPINE
     Dosage: UNK
     Route: 048
  145. CLOZAPINE [Suspect]
     Active Substance: CLOZAPINE
     Dosage: 400.000MG QD
     Dates: end: 20191223
  146. CLOZAPINE [Suspect]
     Active Substance: CLOZAPINE
     Dosage: 200.000MG QD
  147. CLOZAPINE [Suspect]
     Active Substance: CLOZAPINE
     Dosage: 275 MG, QD, PM
     Route: 048
  148. CLOZAPINE [Suspect]
     Active Substance: CLOZAPINE
     Dosage: 600.000MG QD
     Route: 048
     Dates: start: 20191207, end: 20191223
  149. CLOZAPINE [Suspect]
     Active Substance: CLOZAPINE
     Dosage: 400.000MG QD
     Dates: start: 20200521
  150. CLOZAPINE [Suspect]
     Active Substance: CLOZAPINE
     Dosage: 1 DOSAGE FORM, QD (PM)
     Dates: start: 2011
  151. CLOZAPINE [Suspect]
     Active Substance: CLOZAPINE
     Dosage: 245.000MG QD
     Route: 048
  152. CLOZAPINE [Suspect]
     Active Substance: CLOZAPINE
     Dosage: 1 DOSAGE FORM, (AT AM)
  153. CLOZAPINE [Suspect]
     Active Substance: CLOZAPINE
     Dosage: 275.000MG QD
     Route: 048
  154. CLOZAPINE [Suspect]
     Active Substance: CLOZAPINE
     Dosage: 400 MG, BID
     Route: 048
  155. CLOZAPINE [Suspect]
     Active Substance: CLOZAPINE
     Dosage: 200.000MG QD
  156. CLOZAPINE [Suspect]
     Active Substance: CLOZAPINE
     Dosage: 6000 MG
     Dates: start: 20100823, end: 20100823
  157. CLOZAPINE [Suspect]
     Active Substance: CLOZAPINE
     Dosage: 6000.000MG
     Route: 048
     Dates: start: 20100823, end: 20100823
  158. CLOZAPINE [Suspect]
     Active Substance: CLOZAPINE
     Dates: start: 20191207, end: 20191223
  159. CLOZAPINE [Suspect]
     Active Substance: CLOZAPINE
     Dosage: 400 MG, QD OFF LABEL USE
     Route: 048
  160. CLOZAPINE [Suspect]
     Active Substance: CLOZAPINE
     Dosage: 100.000MG QD
     Route: 048
     Dates: start: 20191223, end: 20191223
  161. CLOZAPINE [Suspect]
     Active Substance: CLOZAPINE
     Dosage: 400.000MG
     Dates: start: 20191223
  162. CLOZAPINE [Suspect]
     Active Substance: CLOZAPINE
     Dosage: 275 MG, QD (PM)
     Dates: start: 20200521
  163. CLOZAPINE [Suspect]
     Active Substance: CLOZAPINE
     Dosage: 245.000MG QD
     Route: 048
     Dates: start: 20190823, end: 20190823
  164. CLOZAPINE [Suspect]
     Active Substance: CLOZAPINE
     Dosage: 400.000MG
     Dates: start: 20191223
  165. CLOZAPINE [Suspect]
     Active Substance: CLOZAPINE
     Dosage: UNK
     Route: 048
     Dates: end: 20200521
  166. CLOZAPINE [Suspect]
     Active Substance: CLOZAPINE
     Dosage: 800.000MG QD
     Route: 048
  167. CLOZAPINE [Suspect]
     Active Substance: CLOZAPINE
     Dosage: 275.000MG QD
     Dates: start: 20200521, end: 20200521
  168. CLOZAPINE [Suspect]
     Active Substance: CLOZAPINE
     Dosage: 50 MG, QD(1X/DAY (MIDDAY))
     Route: 048
     Dates: start: 20190809, end: 20190823
  169. CLOZAPINE [Suspect]
     Active Substance: CLOZAPINE
     Dosage: 100 MG, QD
     Dates: start: 20200521
  170. CLOZAPINE [Suspect]
     Active Substance: CLOZAPINE
     Dosage: 6000.000MG
     Dates: start: 20201209
  171. CLOZAPINE [Suspect]
     Active Substance: CLOZAPINE
     Dosage: 6000.000MG
     Route: 048
     Dates: start: 20191223, end: 20191223
  172. CLOZAPINE [Suspect]
     Active Substance: CLOZAPINE
     Dosage: 6000 MG
  173. CLOZAPINE [Suspect]
     Active Substance: CLOZAPINE
     Dosage: 245 MG, QD (AM)
     Route: 048
     Dates: start: 20191223, end: 20191223
  174. CLOZAPINE [Suspect]
     Active Substance: CLOZAPINE
     Dosage: 200 MILLIGRAM, TWO TIMES A DAY 200 MG, BID
     Route: 048
  175. CLOZAPINE [Suspect]
     Active Substance: CLOZAPINE
     Dosage: 300 MG, QD (PM)
  176. CLOZAPINE [Suspect]
     Active Substance: CLOZAPINE
     Dosage: 50.000MG QD
     Dates: start: 20191223
  177. CLOZAPINE [Suspect]
     Active Substance: CLOZAPINE
     Dosage: 6000.000MG
     Route: 048
     Dates: start: 20201223, end: 20201223
  178. CLOZAPINE [Suspect]
     Active Substance: CLOZAPINE
     Dosage: 100 MG
  179. CLOZAPINE [Suspect]
     Active Substance: CLOZAPINE
     Dosage: 400.000MG QD
     Route: 048
  180. CLOZAPINE [Suspect]
     Active Substance: CLOZAPINE
     Dosage: 1.000DF QD
     Route: 048
     Dates: start: 2011
  181. CLOZAPINE [Suspect]
     Active Substance: CLOZAPINE
     Dosage: 400.000MG QD
     Dates: start: 20200521
  182. CLOZAPINE [Suspect]
     Active Substance: CLOZAPINE
     Dosage: 800 MG, QD
     Route: 048
     Dates: start: 20201207
  183. CLOZAPINE [Suspect]
     Active Substance: CLOZAPINE
     Dosage: 275.000MG QD
     Route: 048
     Dates: end: 20200521
  184. CLOZAPINE [Suspect]
     Active Substance: CLOZAPINE
     Dosage: 300 MG, QD (PM)
  185. CLOZAPINE [Suspect]
     Active Substance: CLOZAPINE
     Dosage: 400.000MG QD
     Route: 048
     Dates: start: 20200207
  186. CLOZAPINE [Suspect]
     Active Substance: CLOZAPINE
     Dosage: 400.000MG QD
     Route: 048
     Dates: end: 20200521
  187. CLOZAPINE [Suspect]
     Active Substance: CLOZAPINE
     Dosage: 6000.000MG
     Dates: start: 20201209
  188. CLOZAPINE [Suspect]
     Active Substance: CLOZAPINE
     Dosage: 400 MG, QD
     Route: 048
     Dates: start: 20100823
  189. CLOZAPINE [Suspect]
     Active Substance: CLOZAPINE
     Dosage: QD
     Route: 048
     Dates: start: 20190823, end: 20190823
  190. CLOZAPINE [Suspect]
     Active Substance: CLOZAPINE
     Dosage: UNK
     Route: 048
     Dates: end: 20200521
  191. CLOZAPINE [Suspect]
     Active Substance: CLOZAPINE
     Dosage: 50 MG, QD, MIDDAY
  192. CLOZAPINE [Suspect]
     Active Substance: CLOZAPINE
     Dosage: 600.000MG QD
     Route: 048
     Dates: start: 2011
  193. CLOZAPINE [Suspect]
     Active Substance: CLOZAPINE
     Dosage: 245 MG, QD(AM)
     Dates: start: 2011
  194. CLOZAPINE [Suspect]
     Active Substance: CLOZAPINE
     Dosage: 50 MG, QD
     Route: 048
     Dates: start: 20191209, end: 20191223
  195. CLOZAPINE [Suspect]
     Active Substance: CLOZAPINE
     Dosage: 400 MG, QD
     Route: 048
     Dates: start: 20191223, end: 20191223
  196. CLOZAPINE [Suspect]
     Active Substance: CLOZAPINE
     Dosage: 50 MG, QD
     Dates: start: 20211209
  197. CLOZAPINE [Suspect]
     Active Substance: CLOZAPINE
     Dosage: 275 MG, QD
  198. CLOZAPINE [Suspect]
     Active Substance: CLOZAPINE
     Dosage: UNK
     Dates: start: 2011
  199. CLOZAPINE [Suspect]
     Active Substance: CLOZAPINE
     Dosage: 400.000MG
     Dates: start: 20191223
  200. CLOZAPINE [Suspect]
     Active Substance: CLOZAPINE
     Dosage: UNK
     Route: 048
     Dates: start: 20200521
  201. CLOZAPINE [Suspect]
     Active Substance: CLOZAPINE
     Dosage: 800 MG, QD
     Dates: start: 20201207
  202. CLOZAPINE [Suspect]
     Active Substance: CLOZAPINE
     Dosage: 1 DOSAGE FORM, (AT AM)
  203. CLOZAPINE [Suspect]
     Active Substance: CLOZAPINE
     Dosage: 245 MG
     Route: 048
     Dates: start: 20200521
  204. CLOZAPINE [Suspect]
     Active Substance: CLOZAPINE
     Dosage: UNK
     Dates: end: 20191223
  205. CLOZAPINE [Suspect]
     Active Substance: CLOZAPINE
     Dosage: 400 MG, QD
     Route: 048
     Dates: start: 20191223, end: 20191223
  206. CLOZAPINE [Suspect]
     Active Substance: CLOZAPINE
     Dosage: 400 MG, QD 200 MG, BID
     Route: 048
     Dates: start: 20191209, end: 20191223
  207. CLOZAPINE [Suspect]
     Active Substance: CLOZAPINE
     Dates: start: 20191207, end: 20191223
  208. CLOZAPINE [Suspect]
     Active Substance: CLOZAPINE
     Dosage: 50 MG, QD
     Route: 048
     Dates: start: 20191209, end: 20191223
  209. CLOZAPINE [Suspect]
     Active Substance: CLOZAPINE
     Dosage: 800 MG, QD
     Route: 048
     Dates: start: 20201207
  210. CLOZAPINE [Suspect]
     Active Substance: CLOZAPINE
     Dosage: 245 MG, QD
     Route: 048
     Dates: start: 20200521
  211. CLOZAPINE [Suspect]
     Active Substance: CLOZAPINE
     Dosage: 200 MG, BID
     Route: 048
     Dates: start: 20191209
  212. CLOZAPINE [Suspect]
     Active Substance: CLOZAPINE
     Dosage: UNK
     Dates: start: 20191209, end: 20191223
  213. CLOZAPINE [Suspect]
     Active Substance: CLOZAPINE
     Dosage: 100 MG, QD (AM)
     Dates: start: 2011
  214. CLOZAPINE [Suspect]
     Active Substance: CLOZAPINE
     Dosage: 400.000MG QD
  215. CLOZAPINE [Suspect]
     Active Substance: CLOZAPINE
     Dosage: 6000 MG
     Route: 048
     Dates: start: 20200521
  216. CLOZAPINE [Suspect]
     Active Substance: CLOZAPINE
     Dosage: 1 DF, QD
     Dates: start: 2011
  217. CLOZAPINE [Suspect]
     Active Substance: CLOZAPINE
     Dosage: 400.000MG QD
     Dates: end: 20191223
  218. CLOZAPINE [Suspect]
     Active Substance: CLOZAPINE
     Dosage: 245 MG
     Route: 048
     Dates: start: 20191207
  219. CLOZAPINE [Suspect]
     Active Substance: CLOZAPINE
     Dosage: 275 MG, QD
     Route: 048
     Dates: start: 20200521, end: 2020
  220. CLOZAPINE [Suspect]
     Active Substance: CLOZAPINE
     Dosage: 245 MG, QD (AM)
     Dates: start: 2011
  221. CLOZAPINE [Suspect]
     Active Substance: CLOZAPINE
     Dosage: 275.000MG QD
     Dates: start: 20200521, end: 20200521
  222. CLOZAPINE [Suspect]
     Active Substance: CLOZAPINE
     Dosage: UNK
     Route: 048
     Dates: start: 20200521, end: 2021
  223. CLOZAPINE [Suspect]
     Active Substance: CLOZAPINE
     Dosage: 275 MG, QD
     Route: 048
     Dates: start: 20200521
  224. CLOZAPINE [Suspect]
     Active Substance: CLOZAPINE
     Dosage: 100 MG, QD (AM)
  225. CLOZAPINE [Suspect]
     Active Substance: CLOZAPINE
     Dosage: 400 MG, BID
  226. CLOZAPINE [Suspect]
     Active Substance: CLOZAPINE
     Dosage: 400 MG, QD
     Route: 048
     Dates: start: 20201207
  227. CLOZAPINE [Suspect]
     Active Substance: CLOZAPINE
     Dosage: UNK
     Route: 048
     Dates: start: 20200521, end: 2020
  228. CLOZAPINE [Suspect]
     Active Substance: CLOZAPINE
     Dosage: 400 MG QD
     Dates: start: 20201207
  229. CLOZAPINE [Suspect]
     Active Substance: CLOZAPINE
     Dosage: 200.000MG QD
  230. CLOZAPINE [Suspect]
     Active Substance: CLOZAPINE
     Dosage: UNK
     Dates: start: 2011
  231. LITHIUM [Suspect]
     Active Substance: LITHIUM
     Indication: Schizophrenia
     Dosage: 1 G
     Route: 048
  232. LITHIUM [Suspect]
     Active Substance: LITHIUM
     Dosage: 6 MG, QD
     Route: 048
  233. LITHIUM [Suspect]
     Active Substance: LITHIUM
     Dosage: 1 MG
     Route: 048
  234. LITHIUM [Suspect]
     Active Substance: LITHIUM
     Dosage: 2 G
     Route: 048
  235. LORAZEPAM [Suspect]
     Active Substance: LORAZEPAM
     Indication: Schizophrenia
     Dosage: 1.000MG
  236. LORAZEPAM [Suspect]
     Active Substance: LORAZEPAM
     Dosage: 1.000MG
  237. LORAZEPAM [Suspect]
     Active Substance: LORAZEPAM
     Dosage: 1.000MG
  238. LORAZEPAM [Suspect]
     Active Substance: LORAZEPAM
     Dosage: UNK
     Route: 048
  239. LORAZEPAM [Suspect]
     Active Substance: LORAZEPAM
     Dosage: 1 MG
     Route: 048
  240. LORAZEPAM [Suspect]
     Active Substance: LORAZEPAM
     Dosage: 1 MG
     Route: 048
  241. LORAZEPAM [Suspect]
     Active Substance: LORAZEPAM
     Dosage: 1 MG
     Route: 048
  242. LORAZEPAM [Suspect]
     Active Substance: LORAZEPAM
     Dosage: 1 MG
     Route: 048
  243. LORAZEPAM [Suspect]
     Active Substance: LORAZEPAM
     Dosage: 1 MG
     Route: 048
  244. LORAZEPAM [Suspect]
     Active Substance: LORAZEPAM
     Dosage: 1 MG
     Route: 048
  245. LORAZEPAM [Suspect]
     Active Substance: LORAZEPAM
     Dosage: 1 MG
     Route: 048
  246. LORAZEPAM [Suspect]
     Active Substance: LORAZEPAM
     Dosage: 1 MG
     Route: 048
  247. LORAZEPAM [Suspect]
     Active Substance: LORAZEPAM
     Dosage: 1 MG
     Route: 048
  248. LORAZEPAM [Suspect]
     Active Substance: LORAZEPAM
     Dosage: 1 MG
     Route: 048
  249. OLANZAPINE [Suspect]
     Active Substance: OLANZAPINE
     Indication: Schizophrenia
     Dosage: 15 MG
     Route: 065
     Dates: start: 20040217
  250. OLANZAPINE [Suspect]
     Active Substance: OLANZAPINE
     Dosage: 15 MG
     Route: 048
     Dates: start: 20060704
  251. OLANZAPINE [Suspect]
     Active Substance: OLANZAPINE
     Dosage: 10 MG
     Route: 065
  252. OLANZAPINE [Suspect]
     Active Substance: OLANZAPINE
     Dosage: 2.5 MG
     Route: 048
     Dates: start: 20080823
  253. OLANZAPINE [Suspect]
     Active Substance: OLANZAPINE
     Dosage: 10 MG
  254. OLANZAPINE [Suspect]
     Active Substance: OLANZAPINE
     Dosage: UNK
  255. OLANZAPINE [Suspect]
     Active Substance: OLANZAPINE
     Dosage: 15 MG
     Dates: start: 20040217
  256. OLANZAPINE [Suspect]
     Active Substance: OLANZAPINE
     Dosage: UNK
  257. OLANZAPINE [Suspect]
     Active Substance: OLANZAPINE
     Dosage: 2.5 MG, QD
     Dates: start: 20080823
  258. OLANZAPINE [Suspect]
     Active Substance: OLANZAPINE
     Dosage: 10 MG
  259. OLANZAPINE [Suspect]
     Active Substance: OLANZAPINE
     Dosage: 2.5 MG
  260. OLANZAPINE [Suspect]
     Active Substance: OLANZAPINE
     Dosage: 15 MG
     Dates: start: 20060704
  261. OLANZAPINE [Suspect]
     Active Substance: OLANZAPINE
     Dosage: 10 MG
  262. OLANZAPINE [Suspect]
     Active Substance: OLANZAPINE
     Dosage: 10.000MG QD
  263. OLANZAPINE [Suspect]
     Active Substance: OLANZAPINE
     Dosage: 10 MILLIGRAM
  264. OLANZAPINE [Suspect]
     Active Substance: OLANZAPINE
  265. OLANZAPINE [Suspect]
     Active Substance: OLANZAPINE
     Dosage: 15.000MG
  266. OLANZAPINE [Suspect]
     Active Substance: OLANZAPINE
     Dosage: 15.000MG
  267. OLANZAPINE [Suspect]
     Active Substance: OLANZAPINE
     Dosage: 15 MG
     Dates: start: 20040217
  268. OLANZAPINE [Suspect]
     Active Substance: OLANZAPINE
     Dosage: 10 MILLIGRAM
  269. OLANZAPINE [Suspect]
     Active Substance: OLANZAPINE
     Dosage: 15 MG
     Dates: start: 20060704
  270. OLANZAPINE [Suspect]
     Active Substance: OLANZAPINE
     Dosage: 10.000MG QD
  271. OLANZAPINE [Suspect]
     Active Substance: OLANZAPINE
     Dosage: 10 MILLIGRAM
  272. OLANZAPINE [Suspect]
     Active Substance: OLANZAPINE
     Dosage: 2.500MG QD
     Route: 048
     Dates: start: 20080823
  273. OLANZAPINE [Suspect]
     Active Substance: OLANZAPINE
     Dosage: 10.000MG QD
  274. OLANZAPINE [Suspect]
     Active Substance: OLANZAPINE
     Dosage: 2.5 MG
  275. OLANZAPINE [Suspect]
     Active Substance: OLANZAPINE
     Dosage: 10.000MG
  276. OLANZAPINE [Suspect]
     Active Substance: OLANZAPINE
     Dosage: 1.000MG
  277. OLANZAPINE [Suspect]
     Active Substance: OLANZAPINE
     Dosage: 10 MG,  UNK
  278. OLANZAPINE [Suspect]
     Active Substance: OLANZAPINE
     Dosage: UNK,  UNK
  279. OLANZAPINE [Suspect]
     Active Substance: OLANZAPINE
     Dosage: UNK,  UNK
  280. OLANZAPINE [Suspect]
     Active Substance: OLANZAPINE
     Dosage: 10 MG, UNK
  281. OLANZAPINE [Suspect]
     Active Substance: OLANZAPINE
     Dosage: UNK
  282. OLANZAPINE [Suspect]
     Active Substance: OLANZAPINE
     Dosage: UNK, UNK
  283. OLANZAPINE [Suspect]
     Active Substance: OLANZAPINE
     Dosage: UNK,  UNK
  284. OLANZAPINE [Suspect]
     Active Substance: OLANZAPINE
     Dosage: 10 MG, UNK
  285. OLANZAPINE [Suspect]
     Active Substance: OLANZAPINE
     Dosage: UNK, UNK
  286. OLANZAPINE [Suspect]
     Active Substance: OLANZAPINE
     Dosage: 10 MG, UNK
  287. OLANZAPINE [Suspect]
     Active Substance: OLANZAPINE
     Dosage: 15 MG, UNK
     Dates: start: 20040217
  288. OLANZAPINE [Suspect]
     Active Substance: OLANZAPINE
     Dosage: 10 MG, UNK
  289. OLANZAPINE [Suspect]
     Active Substance: OLANZAPINE
     Dosage: 1 MG
     Route: 048
  290. OLANZAPINE [Suspect]
     Active Substance: OLANZAPINE
     Dosage: 1.000MG
     Route: 048
  291. OLANZAPINE [Suspect]
     Active Substance: OLANZAPINE
     Dosage: 2.5 MG
     Route: 048
     Dates: start: 20080823
  292. OLANZAPINE [Suspect]
     Active Substance: OLANZAPINE
     Dosage: 15.000MG
     Route: 048
     Dates: start: 20060704
  293. RISPERIDONE [Suspect]
     Active Substance: RISPERIDONE
     Indication: Schizophrenia
     Dosage: 2 MG, BID
     Route: 065
  294. RISPERIDONE [Suspect]
     Active Substance: RISPERIDONE
     Dosage: 1 G, QD
     Route: 065
  295. RISPERIDONE [Suspect]
     Active Substance: RISPERIDONE
     Dosage: 1 GRAM, QD
     Route: 065
  296. RISPERIDONE [Suspect]
     Active Substance: RISPERIDONE
     Dosage: 1 MG, QD
     Route: 065
  297. RISPERIDONE [Suspect]
     Active Substance: RISPERIDONE
     Dosage: 4 MG, QD
     Route: 065
  298. RISPERIDONE [Suspect]
     Active Substance: RISPERIDONE
     Dosage: 4 MG, BID
     Route: 065
  299. RISPERIDONE [Suspect]
     Active Substance: RISPERIDONE
     Dosage: 1 G, QD
     Route: 065
  300. RISPERIDONE [Suspect]
     Active Substance: RISPERIDONE
     Dosage: 1 G, QD
     Route: 065
  301. RISPERIDONE [Suspect]
     Active Substance: RISPERIDONE
     Dosage: 2 MG, BID
     Route: 065
  302. RISPERIDONE [Suspect]
     Active Substance: RISPERIDONE
     Dosage: 4 MG, BID (2 MG, BID)
     Route: 065
  303. RISPERIDONE [Suspect]
     Active Substance: RISPERIDONE
     Dosage: 1 MG, QD
     Route: 065
  304. RISPERIDONE [Suspect]
     Active Substance: RISPERIDONE
     Dosage: 2 MILLIGRAM 2 MG, BID
  305. RISPERIDONE [Suspect]
     Active Substance: RISPERIDONE
     Dosage: 4 MILLIGRAM, ONCE A DAY (4 MG, QD) 2 MILLIGRAM, BID
  306. RISPERIDONE [Suspect]
     Active Substance: RISPERIDONE
     Dosage: 3 MILLIGRAM, TWO TIMES A DAY 3 MG, Q12H 3 MG, BID
  307. RISPERIDONE [Suspect]
     Active Substance: RISPERIDONE
     Dosage: 1.000MG QD
  308. RISPERIDONE [Suspect]
     Active Substance: RISPERIDONE
     Dosage: 1 GRAM, ONCE A DAY
  309. RISPERIDONE [Suspect]
     Active Substance: RISPERIDONE
     Dosage: 1.000MG BID
  310. RISPERIDONE [Suspect]
     Active Substance: RISPERIDONE
     Dosage: 6.000MG QD
  311. RISPERIDONE [Suspect]
     Active Substance: RISPERIDONE
     Dosage: 2 MILLIGRAM 2 MG, BID
  312. RISPERIDONE [Suspect]
     Active Substance: RISPERIDONE
     Dosage: 4 MILLIGRAM, ONCE A DAY (4 MG, QD) 2 MILLIGRAM, BID
  313. RISPERIDONE [Suspect]
     Active Substance: RISPERIDONE
     Dosage: 3 MILLIGRAM, TWO TIMES A DAY 3 MG, Q12H 3 MG, BID
  314. RISPERIDONE [Suspect]
     Active Substance: RISPERIDONE
     Dosage: 1.000G QD
  315. RISPERIDONE [Suspect]
     Active Substance: RISPERIDONE
     Dosage: 1.000MG QD
  316. RISPERIDONE [Suspect]
     Active Substance: RISPERIDONE
     Dosage: 2.000MG QD
  317. RISPERIDONE [Suspect]
     Active Substance: RISPERIDONE
     Dosage: 1 GRAM, ONCE A DAY
  318. RISPERIDONE [Suspect]
     Active Substance: RISPERIDONE
     Dosage: 12.000MG QD
  319. RISPERIDONE [Suspect]
     Active Substance: RISPERIDONE
     Dosage: 6.000MG QD
  320. RISPERIDONE [Suspect]
     Active Substance: RISPERIDONE
     Dosage: 1.000MG BID
  321. RISPERIDONE [Suspect]
     Active Substance: RISPERIDONE
     Dosage: 6.000MG QD
  322. RISPERIDONE [Suspect]
     Active Substance: RISPERIDONE
     Dosage: 4.000MG BID
  323. RISPERIDONE [Suspect]
     Active Substance: RISPERIDONE
     Dosage: 4.000MG QD
  324. RISPERIDONE [Suspect]
     Active Substance: RISPERIDONE
     Dosage: 6.000MG BID
  325. RISPERIDONE [Suspect]
     Active Substance: RISPERIDONE
     Dosage: 1 MG, QD
  326. RISPERIDONE [Suspect]
     Active Substance: RISPERIDONE
     Dosage: 4 MILLIGRAM, QD (2 MG, 2X/DAY)
  327. RISPERIDONE [Suspect]
     Active Substance: RISPERIDONE
     Dosage: 2 MG, BID
  328. RISPERIDONE [Suspect]
     Active Substance: RISPERIDONE
     Dosage: 6.000MG BID
  329. RISPERIDONE [Suspect]
     Active Substance: RISPERIDONE
     Dosage: 3 MILLIGRAM, TWO TIMES A DAY 3 MG, Q12H 3 MG, BID
  330. RISPERIDONE [Suspect]
     Active Substance: RISPERIDONE
     Dosage: 4.000MG QD
  331. RISPERIDONE [Suspect]
     Active Substance: RISPERIDONE
     Dosage: 1 G, QD
  332. RISPERIDONE [Suspect]
     Active Substance: RISPERIDONE
     Dosage: 4 MG, QD (2MG BID)
  333. RISPERIDONE [Suspect]
     Active Substance: RISPERIDONE
     Dosage: 1.000G QD
  334. RISPERIDONE [Suspect]
     Active Substance: RISPERIDONE
     Dosage: 4.000MG QD
  335. RISPERIDONE [Suspect]
     Active Substance: RISPERIDONE
     Dosage: 4 MILLIGRAM, ONCE A DAY (4 MG, QD) 2 MILLIGRAM, BID
  336. RISPERIDONE [Suspect]
     Active Substance: RISPERIDONE
     Dosage: 6.000MG QD
  337. RISPERIDONE [Suspect]
     Active Substance: RISPERIDONE
     Dosage: 4 MG, BID
  338. RISPERIDONE [Suspect]
     Active Substance: RISPERIDONE
     Dosage: 6 MG, QD (3MG BID)
  339. RISPERIDONE [Suspect]
     Active Substance: RISPERIDONE
     Dosage: 4.000MG BID
  340. RISPERIDONE [Suspect]
     Active Substance: RISPERIDONE
     Dosage: 3 MILLIGRAM, TWO TIMES A DAY 3 MG, Q12H 3 MG, BID
  341. RISPERIDONE [Suspect]
     Active Substance: RISPERIDONE
     Dosage: 4.000MG BID
  342. RISPERIDONE [Suspect]
     Active Substance: RISPERIDONE
     Dosage: 1.000MG BID
  343. RISPERIDONE [Suspect]
     Active Substance: RISPERIDONE
     Dosage: 3 MG, BID
  344. RISPERIDONE [Suspect]
     Active Substance: RISPERIDONE
     Dosage: 4 MG, QD
  345. RISPERIDONE [Suspect]
     Active Substance: RISPERIDONE
     Dosage: 6.000MG QD
  346. RISPERIDONE [Suspect]
     Active Substance: RISPERIDONE
     Dosage: 4 MG, QD
  347. RISPERIDONE [Suspect]
     Active Substance: RISPERIDONE
     Dosage: 6.000MG BID
  348. RISPERIDONE [Suspect]
     Active Substance: RISPERIDONE
     Dosage: 4 MILLIGRAM, ONCE A DAY (4 MG, QD) 2 MILLIGRAM, BID
  349. RISPERIDONE [Suspect]
     Active Substance: RISPERIDONE
     Dosage: 6.000MG QD
  350. RISPERIDONE [Suspect]
     Active Substance: RISPERIDONE
     Dosage: 1 MG, QD
  351. RISPERIDONE [Suspect]
     Active Substance: RISPERIDONE
     Dosage: 1 MG, QD
  352. RISPERIDONE [Suspect]
     Active Substance: RISPERIDONE
     Dosage: 2 MG, BID
  353. RISPERIDONE [Suspect]
     Active Substance: RISPERIDONE
     Dosage: 12.000MG QD
  354. RISPERIDONE [Suspect]
     Active Substance: RISPERIDONE
     Dosage: 6 MG, QD
  355. RISPERIDONE [Suspect]
     Active Substance: RISPERIDONE
     Dosage: 4.000MG QD
  356. RISPERIDONE [Suspect]
     Active Substance: RISPERIDONE
     Dosage: 2 MILLIGRAM 2 MG, BID
  357. RISPERIDONE [Suspect]
     Active Substance: RISPERIDONE
     Dosage: 6.000MG QD
  358. RISPERIDONE [Suspect]
     Active Substance: RISPERIDONE
     Dosage: 4 MILLIGRAM, QD (2 MG, 2X/DAY)
  359. RISPERIDONE [Suspect]
     Active Substance: RISPERIDONE
     Dosage: 1 GRAM, ONCE A DAY
  360. RISPERIDONE [Suspect]
     Active Substance: RISPERIDONE
     Dosage: 4.000MG BID
  361. RISPERIDONE [Suspect]
     Active Substance: RISPERIDONE
     Dosage: 1 MG, QD
  362. RISPERIDONE [Suspect]
     Active Substance: RISPERIDONE
     Dosage: 6.000MG QD
  363. RISPERIDONE [Suspect]
     Active Substance: RISPERIDONE
     Dosage: 1.000MG BID
  364. RISPERIDONE [Suspect]
     Active Substance: RISPERIDONE
     Dosage: 1 MG, QD
  365. RISPERIDONE [Suspect]
     Active Substance: RISPERIDONE
     Dosage: 2.000MG QD
  366. RISPERIDONE [Suspect]
     Active Substance: RISPERIDONE
     Dosage: 4 MG, BID (2 MG, BID)
  367. RISPERIDONE [Suspect]
     Active Substance: RISPERIDONE
     Dosage: 2 MG, BID
  368. RISPERIDONE [Suspect]
     Active Substance: RISPERIDONE
     Dosage: 1.000MG BID
  369. RISPERIDONE [Suspect]
     Active Substance: RISPERIDONE
     Dosage: 1 GRAM, ONCE A DAY
  370. RISPERIDONE [Suspect]
     Active Substance: RISPERIDONE
     Dosage: 1.000G QD
  371. RISPERIDONE [Suspect]
     Active Substance: RISPERIDONE
     Dosage: 1 MG, QD
  372. RISPERIDONE [Suspect]
     Active Substance: RISPERIDONE
     Dosage: 1 G, QD
  373. RISPERIDONE [Suspect]
     Active Substance: RISPERIDONE
     Dosage: 2 MG
  374. RISPERIDONE [Suspect]
     Active Substance: RISPERIDONE
     Dosage: 1.000MG QD
  375. RISPERIDONE [Suspect]
     Active Substance: RISPERIDONE
     Dosage: 2 MG, BID
  376. RISPERIDONE [Suspect]
     Active Substance: RISPERIDONE
     Dosage: 1 GRAM, QD
  377. RISPERIDONE [Suspect]
     Active Substance: RISPERIDONE
     Dosage: 4 MG, QD
  378. RISPERIDONE [Suspect]
     Active Substance: RISPERIDONE
     Dosage: 2.000MG QD
  379. RISPERIDONE [Suspect]
     Active Substance: RISPERIDONE
     Dosage: 4 MILLIGRAM, QD (2 MG, 2X/DAY)
  380. RISPERIDONE [Suspect]
     Active Substance: RISPERIDONE
     Dosage: 1 G, QD
  381. RISPERIDONE [Suspect]
     Active Substance: RISPERIDONE
     Dosage: 1 G
  382. RISPERIDONE [Suspect]
     Active Substance: RISPERIDONE
     Dosage: 6.000MG BID
  383. RISPERIDONE [Suspect]
     Active Substance: RISPERIDONE
     Dosage: 1 MG, QD
  384. RISPERIDONE [Suspect]
     Active Substance: RISPERIDONE
     Dosage: 2 MG, BID
  385. RISPERIDONE [Suspect]
     Active Substance: RISPERIDONE
     Dosage: 1.000G QD
  386. RISPERIDONE [Suspect]
     Active Substance: RISPERIDONE
     Dosage: 6 MG, QD
     Route: 048
  387. RISPERIDONE [Suspect]
     Active Substance: RISPERIDONE
     Dosage: 2 MILLIGRAM 2 MG, BID
  388. RISPERIDONE [Suspect]
     Active Substance: RISPERIDONE
     Dosage: 3 MG, BID
     Route: 048
  389. RISPERIDONE [Suspect]
     Active Substance: RISPERIDONE
     Dosage: 2 MILLIGRAM 2 MG, BID
  390. RISPERIDONE [Suspect]
     Active Substance: RISPERIDONE
     Dosage: 3 MG, BID
     Route: 048
  391. RISPERIDONE [Suspect]
     Active Substance: RISPERIDONE
     Dosage: 6 MG, QD
     Route: 048
  392. RISPERIDONE [Suspect]
     Active Substance: RISPERIDONE
     Dosage: 3 MG, BID
  393. RISPERIDONE [Suspect]
     Active Substance: RISPERIDONE
     Dosage: 12.000MG QD
  394. RISPERIDONE [Suspect]
     Active Substance: RISPERIDONE
     Dosage: 6.000MG QD
  395. RISPERIDONE [Suspect]
     Active Substance: RISPERIDONE
     Dosage: 1.000MG QD
  396. RISPERIDONE [Suspect]
     Active Substance: RISPERIDONE
     Dosage: 3 MILLIGRAM, TWO TIMES A DAY 3 MG, Q12H 3 MG, BID
  397. RISPERIDONE [Suspect]
     Active Substance: RISPERIDONE
     Dosage: 12.000MG QD
  398. RISPERIDONE [Suspect]
     Active Substance: RISPERIDONE
     Dosage: 1 GRAM, ONCE A DAY
  399. RISPERIDONE [Suspect]
     Active Substance: RISPERIDONE
     Dosage: 4 MILLIGRAM, ONCE A DAY (4 MG, QD) 2 MILLIGRAM, BID
  400. RISPERIDONE [Suspect]
     Active Substance: RISPERIDONE
     Dosage: 2.000MG QD
  401. RISPERIDONE [Suspect]
     Active Substance: RISPERIDONE
     Dosage: 2 MG, BID
  402. RISPERIDONE [Suspect]
     Active Substance: RISPERIDONE
     Dosage: 2 MG, BID
  403. RISPERIDONE [Suspect]
     Active Substance: RISPERIDONE
     Dosage: 1.000MG QD
  404. RISPERIDONE [Suspect]
     Active Substance: RISPERIDONE
     Dosage: 4 MILLIGRAM, QD (2 MG, 2X/DAY)
  405. RISPERIDONE [Suspect]
     Active Substance: RISPERIDONE
     Dosage: 1 MG, QD
  406. RISPERIDONE [Suspect]
     Active Substance: RISPERIDONE
     Dosage: 3 MG, Q12H
     Route: 048
  407. ZUCLOPENTHIXOL HYDROCHLORIDE [Suspect]
     Active Substance: ZUCLOPENTHIXOL HYDROCHLORIDE
     Indication: Schizophrenia
     Dosage: 400 MG, BIW
     Route: 065
     Dates: start: 20030204, end: 20040217
  408. ZUCLOPENTHIXOL HYDROCHLORIDE [Suspect]
     Active Substance: ZUCLOPENTHIXOL HYDROCHLORIDE
     Dosage: 400 MG, QW
     Route: 065
     Dates: start: 20040217, end: 20040601
  409. ZUCLOPENTHIXOL HYDROCHLORIDE [Suspect]
     Active Substance: ZUCLOPENTHIXOL HYDROCHLORIDE
     Dosage: 400 MG, BIW
     Route: 065
     Dates: start: 20040601, end: 20041018
  410. ZUCLOPENTHIXOL HYDROCHLORIDE [Suspect]
     Active Substance: ZUCLOPENTHIXOL HYDROCHLORIDE
     Dosage: 400 MG, BIW
     Route: 065
     Dates: start: 20041018, end: 20041018
  411. ZUCLOPENTHIXOL HYDROCHLORIDE [Suspect]
     Active Substance: ZUCLOPENTHIXOL HYDROCHLORIDE
     Dosage: 300 MG, QW (300 MILLIGRAM I.M WEEKLY)
     Route: 030
     Dates: start: 20091009
  412. ZUCLOPENTHIXOL HYDROCHLORIDE [Suspect]
     Active Substance: ZUCLOPENTHIXOL HYDROCHLORIDE
     Dosage: UNK
     Route: 065
  413. ZUCLOPENTHIXOL HYDROCHLORIDE [Suspect]
     Active Substance: ZUCLOPENTHIXOL HYDROCHLORIDE
     Dosage: 400 MG, CYCLIC (400 MG, BIWEEKLY)
     Route: 065
     Dates: start: 20040601, end: 20041018
  414. ZUCLOPENTHIXOL HYDROCHLORIDE [Suspect]
     Active Substance: ZUCLOPENTHIXOL HYDROCHLORIDE
     Dosage: UNK
  415. DOCETAXEL [Suspect]
     Active Substance: DOCETAXEL
     Indication: Breast cancer metastatic
     Dosage: 220 MG
     Route: 065
     Dates: start: 20151222
  416. DOCETAXEL [Suspect]
     Active Substance: DOCETAXEL
     Dosage: UNK
     Dates: start: 20151222
  417. PACLITAXEL [Suspect]
     Active Substance: PACLITAXEL
     Indication: Breast cancer metastatic
     Dosage: 120 MG, QW
     Route: 065
     Dates: start: 20151111, end: 20151222
  418. PACLITAXEL [Suspect]
     Active Substance: PACLITAXEL
     Dosage: 120 MG, QW
     Dates: start: 20151223, end: 20151223

REACTIONS (12)
  - Hallucination, auditory [Fatal]
  - Neutropenia [Fatal]
  - Leukopenia [Fatal]
  - Schizophrenia [Fatal]
  - Seizure [Fatal]
  - Neuropathy peripheral [Fatal]
  - Thrombocytopenia [Fatal]
  - Overdose [Fatal]
  - Off label use [Fatal]
  - Incorrect dose administered [Fatal]
  - Off label use [Fatal]
  - Intentional product misuse [Fatal]

NARRATIVE: CASE EVENT DATE: 20151201
